FAERS Safety Report 4669794-4 (Version None)
Quarter: 2005Q2

REPORT INFORMATION
  Report Type: 
  Country: None (occurrence: None)
  Receive Date: 20050520
  Receipt Date: 20050506
  Transmission Date: 20051028
  Serious: Yes (Other)
  Sender: FDA-Public Use
  Company Number: 2005BI002784

PATIENT
  Age: 34 Year
  Sex: Female
  Weight: 58.9676 kg

DRUGS (3)
  1. AVONEX [Suspect]
     Indication: MULTIPLE SCLEROSIS
     Dosage: 30 UG; QW; IM
     Route: 030
     Dates: start: 20010401, end: 20050128
  2. AMITRIPTYLINE [Concomitant]
  3. BACLOFEN [Concomitant]

REACTIONS (2)
  - BLOOD ALBUMIN DECREASED [None]
  - HEPATITIS [None]
